FAERS Safety Report 6159142-5 (Version None)
Quarter: 2009Q2

REPORT INFORMATION
  Report Type: 
  Country: None (occurrence: None)
  Receive Date: 20090417
  Receipt Date: 20090414
  Transmission Date: 20091009
  Serious: Yes (Other)
  Sender: FDA-Public Use
  Company Number: US-RB-006844-08

PATIENT
  Sex: Female

DRUGS (12)
  1. SUBUTEX [Suspect]
     Route: 060
     Dates: start: 20080930, end: 20090128
  2. SUBUTEX [Suspect]
     Route: 060
     Dates: start: 20090129
  3. CALCIUM [Concomitant]
     Indication: DRUG USE FOR UNKNOWN INDICATION
     Route: 048
     Dates: start: 20050109
  4. MACRODANTIN [Concomitant]
     Indication: DRUG USE FOR UNKNOWN INDICATION
     Route: 048
     Dates: start: 20081003, end: 20081010
  5. MACRODANTIN [Concomitant]
     Route: 048
     Dates: start: 20090209, end: 20090215
  6. DIFLUCAN [Concomitant]
     Indication: DRUG USE FOR UNKNOWN INDICATION
     Route: 048
     Dates: start: 20081027
  7. DOCUSATE SODIUM [Concomitant]
     Indication: DRUG USE FOR UNKNOWN INDICATION
     Route: 048
     Dates: start: 20081027
  8. CITRUCEL POWDER [Concomitant]
     Indication: DRUG USE FOR UNKNOWN INDICATION
     Dosage: 1 TABLESPOON TWICE DAILY
     Route: 048
     Dates: start: 20081027
  9. AMOXICILLIN [Concomitant]
     Indication: DRUG USE FOR UNKNOWN INDICATION
     Route: 048
     Dates: start: 20081128
  10. PERCOCET [Concomitant]
     Indication: PAIN
     Dosage: 1-2 TABS EVERY 4 HOURS AS NEEDED FOR PAIN
     Route: 048
     Dates: start: 20081128
  11. FLINTSTONES MULTIVITAMIN [Concomitant]
     Indication: DRUG USE FOR UNKNOWN INDICATION
     Dosage: 1 TABLET DAILY
     Route: 048
     Dates: start: 20050109, end: 20090128
  12. VITAMIN TAB [Concomitant]
     Indication: DRUG USE FOR UNKNOWN INDICATION
     Dosage: ONE TABLET DAILY
     Route: 048
     Dates: start: 20090129

REACTIONS (2)
  - DRUG EXPOSURE DURING PREGNANCY [None]
  - PREMATURE LABOUR [None]
